FAERS Safety Report 24920305 (Version 1)
Quarter: 2025Q1

REPORT INFORMATION
  Report Type: Spontaneous
  Country: US (occurrence: US)
  Receive Date: 20250204
  Receipt Date: 20250204
  Transmission Date: 20250409
  Serious: Yes (Other)
  Sender: HIKMA
  Company Number: US-HIKMA PHARMACEUTICALS USA INC.-US-H14001-25-00984

PATIENT
  Sex: Female
  Weight: 77.098 kg

DRUGS (3)
  1. LITHIUM CARBONATE [Suspect]
     Active Substance: LITHIUM CARBONATE
     Indication: Bipolar disorder
     Dosage: 600 MILLIGRAM, QD, AT NIGHT
     Route: 048
  2. DIFLUCAN [Concomitant]
     Active Substance: FLUCONAZOLE
     Indication: Product used for unknown indication
     Route: 065
  3. OLANZAPINE [Concomitant]
     Active Substance: OLANZAPINE
     Indication: Product used for unknown indication
     Route: 065

REACTIONS (10)
  - Tremor [Unknown]
  - Flat affect [Unknown]
  - Heart rate increased [Unknown]
  - Electrocardiogram abnormal [Unknown]
  - Cardiac flutter [Unknown]
  - Speech disorder [Unknown]
  - Mental impairment [Unknown]
  - Product use issue [Unknown]
  - Product dose omission issue [Unknown]
  - Overdose [Unknown]
